FAERS Safety Report 6706076-0 (Version None)
Quarter: 2010Q2

REPORT INFORMATION
  Report Type: 
  Country: None (occurrence: None)
  Receive Date: 20100430
  Receipt Date: 20100430
  Transmission Date: 20101027
  Serious: No
  Sender: FDA-Public Use
  Company Number: None

PATIENT
  Age: 37 Year
  Sex: Male
  Weight: 133.8111 kg

DRUGS (1)
  1. SERTRALINE HCL [Suspect]
     Indication: PANIC ATTACK
     Dosage: 100MG DAILY ONCE
     Dates: start: 20071115, end: 20071202

REACTIONS (5)
  - DRUG EFFECT DECREASED [None]
  - INSOMNIA [None]
  - NERVOUSNESS [None]
  - PANIC ATTACK [None]
  - PRODUCT SUBSTITUTION ISSUE [None]
